FAERS Safety Report 5893406-5 (Version None)
Quarter: 2008Q3

REPORT INFORMATION
  Report Type: 
  Country: None (occurrence: None)
  Receive Date: 20080922
  Receipt Date: 20080922
  Transmission Date: 20090109
  Serious: Yes (Other)
  Sender: FDA-Public Use
  Company Number: None

PATIENT
  Age: 60 Year
  Sex: Female
  Weight: 58.9676 kg

DRUGS (1)
  1. NIGHT TIME SLEEP AID 25MG PERRIGO [Suspect]
     Indication: SOMNOLENCE
     Dosage: 1-2 HS PO
     Route: 048
     Dates: start: 20080901, end: 20080918

REACTIONS (1)
  - URINARY TRACT INFECTION [None]
